FAERS Safety Report 7551936-4 (Version None)
Quarter: 2011Q2

REPORT INFORMATION
  Report Type: 
  Country: None (occurrence: None)
  Receive Date: 20110616
  Receipt Date: 20110613
  Transmission Date: 20111010
  Serious: Yes (Death)
  Sender: FDA-Public Use
  Company Number: BR-BAYER-2011-030646

PATIENT
  Sex: Male

DRUGS (1)
  1. BETAFERON [Suspect]
     Indication: MULTIPLE SCLEROSIS
     Dosage: 9.600 MIU, QOD
     Route: 064
     Dates: start: 20100901, end: 20101012

REACTIONS (2)
  - PULMONARY MALFORMATION [None]
  - PREMATURE SEPARATION OF PLACENTA [None]
